FAERS Safety Report 6583175-8 (Version None)
Quarter: 2010Q1

REPORT INFORMATION
  Report Type: 
  Country: None (occurrence: None)
  Receive Date: 20100216
  Receipt Date: 20100202
  Transmission Date: 20100710
  Serious: Yes (Life-Threatening, Hospitalization)
  Sender: FDA-Public Use
  Company Number: BR-AMGEN-US392360

PATIENT
  Age: 10 Year
  Sex: Male

DRUGS (5)
  1. ENBREL [Suspect]
     Indication: JUVENILE ARTHRITIS
     Route: 058
  2. METHOTREXATE [Concomitant]
     Indication: JUVENILE ARTHRITIS
     Route: 065
  3. NAPROXEN [Concomitant]
     Indication: JUVENILE ARTHRITIS
     Route: 065
  4. CYCLOSPORINE [Concomitant]
     Route: 042
  5. CYCLOSPORINE [Concomitant]
     Route: 048

REACTIONS (2)
  - HISTIOCYTOSIS HAEMATOPHAGIC [None]
  - PNEUMONIA BACTERIAL [None]
